FAERS Safety Report 7757201-4 (Version None)
Quarter: 2011Q3

REPORT INFORMATION
  Report Type: 
  Country: None (occurrence: None)
  Receive Date: 20110916
  Receipt Date: 20110907
  Transmission Date: 20111222
  Serious: Yes (Other)
  Sender: FDA-Public Use
  Company Number: GB-UCBSA-040871

PATIENT
  Age: 61 Year
  Sex: Female
  Weight: 94.6 kg

DRUGS (8)
  1. BENDROFLUMETHIAZIDE [Concomitant]
     Dosage: 2.5 MG
     Route: 048
  2. ETODOLAC [Concomitant]
     Indication: RHEUMATOID ARTHRITIS
     Route: 048
  3. HYDROXYCHLOROQUINE [Concomitant]
     Route: 048
  4. RAMIPRIL [Concomitant]
     Route: 048
  5. FOLIC ACID [Concomitant]
     Route: 048
  6. METHOTREXATE [Concomitant]
     Indication: RHEUMATOID ARTHRITIS
     Route: 048
  7. CIMZIA [Suspect]
     Indication: RHEUMATOID ARTHRITIS
     Route: 058
     Dates: start: 20110425, end: 20110711
  8. LANSOPRAZOLE [Concomitant]
     Route: 048

REACTIONS (3)
  - DRY MOUTH [None]
  - PSORIASIS [None]
  - DYSPHONIA [None]
